FAERS Safety Report 6908756-0 (Version None)
Quarter: 2010Q3

REPORT INFORMATION
  Report Type: 
  Country: None (occurrence: None)
  Receive Date: 20100805
  Receipt Date: 20100728
  Transmission Date: 20110219
  Serious: Yes (Hospitalization)
  Sender: FDA-Public Use
  Company Number: A0857699A

PATIENT
  Age: 69 Year
  Sex: Male

DRUGS (4)
  1. ADVAIR DISKUS 100/50 [Suspect]
     Indication: ASTHMA
     Route: 055
     Dates: start: 20040101, end: 20100601
  2. SINGULAIR [Concomitant]
  3. SPIRIVA [Concomitant]
  4. REPAGLINIDE [Concomitant]

REACTIONS (8)
  - ASTHMA [None]
  - CHILLS [None]
  - INCREASED UPPER AIRWAY SECRETION [None]
  - LUNG INFECTION [None]
  - PHARYNGITIS [None]
  - PYREXIA [None]
  - RESPIRATORY DISORDER [None]
  - RESPIRATORY TRACT INFECTION [None]
